FAERS Safety Report 10184662 (Version 1)
Quarter: 2014Q2

REPORT INFORMATION
  Report Type: Spontaneous
  Country: AU (occurrence: None)
  Receive Date: 20140519
  Receipt Date: 20140519
  Transmission Date: 20141212
  Serious: Yes (Death)
  Sender: FDA-Public Use
  Company Number: ADR-2014-00830

PATIENT
  Age: 8 Year
  Sex: Male

DRUGS (17)
  1. BACLOFEN [Suspect]
     Indication: MUSCLE SPASMS
  2. BACLOFEN [Suspect]
  3. AMANTADINE [Suspect]
     Indication: LYSSAVIRUS TEST POSITIVE
  4. BENZODIAZEPINES [Suspect]
  5. OPIOIDS [Suspect]
  6. KETAMINE [Suspect]
  7. PROPOFOL [Suspect]
  8. MAGNESIUM SULFATE [Suspect]
  9. CEFOTAXIME [Suspect]
  10. VANCOMYCIN [Suspect]
  11. ACYCLOVIR [Suspect]
  12. TETANUS IMMUNE GLOBULIN (HUMAN) [Suspect]
  13. METHYLPREDNISOLONE [Suspect]
  14. IMMUNOGLOBULINS NOS [Suspect]
  15. VASOPRESSIN [Suspect]
  16. HYDROCORTISONE [Suspect]
  17. PHENYTOIN [Suspect]

REACTIONS (13)
  - Encephalopathy [None]
  - Disease progression [None]
  - Autonomic nervous system imbalance [None]
  - Diabetes insipidus [None]
  - Arrhythmia supraventricular [None]
  - Body temperature fluctuation [None]
  - Sinus arrhythmia [None]
  - Sinus arrest [None]
  - Hypopituitarism [None]
  - Hypoglycaemia [None]
  - Convulsion [None]
  - Pupil fixed [None]
  - Areflexia [None]
